FAERS Safety Report 4817877-8 (Version None)
Quarter: 2005Q3

REPORT INFORMATION
  Report Type: 
  Country: None (occurrence: None)
  Receive Date: 20050929
  Receipt Date: 20050623
  Transmission Date: 20060218
  Serious: No
  Sender: FDA-Public Use
  Company Number: 05P-163-0303955-00

PATIENT
  Age: 60 Year
  Sex: Male
  Weight: 79.8331 kg

DRUGS (5)
  1. HUMIRA [Suspect]
     Indication: RHEUMATOID ARTHRITIS
     Dosage: 40 MG, 1 IN 2 WK, SUBCUTANEOUS
     Route: 058
     Dates: start: 20050401
  2. NAPROXEN [Concomitant]
  3. PREDNISONE [Concomitant]
  4. BLOOD PRESSURE PILL [Concomitant]
  5. SUGAR PILL [Concomitant]

REACTIONS (2)
  - EAR INFECTION [None]
  - PHARYNGOLARYNGEAL PAIN [None]
